FAERS Safety Report 16737685 (Version 3)
Quarter: 2020Q2

REPORT INFORMATION
  Report Type: Report from Study
  Country: US (occurrence: US)
  Receive Date: 20190823
  Receipt Date: 20200530
  Transmission Date: 20200713
  Serious: Yes (Hospitalization)
  Sender: FDA-Public Use
  Company Number: PHEH2019US034665

PATIENT
  Sex: Female
  Weight: 72.11 kg

DRUGS (4)
  1. SILDENAFIL CITRATE. [Concomitant]
     Active Substance: SILDENAFIL CITRATE
     Indication: PRODUCT USED FOR UNKNOWN INDICATION
     Dosage: UNK
     Route: 065
  2. TREPROSTINIL. [Suspect]
     Active Substance: TREPROSTINIL
     Dosage: 33 NG/KG/MIN, CONTINUOUS
     Route: 042
     Dates: start: 20190619
  3. TREPROSTINIL. [Suspect]
     Active Substance: TREPROSTINIL
     Indication: PRODUCT USED FOR UNKNOWN INDICATION
     Dosage: 33 NG/KG/MIN, CONTINUOUS
     Route: 042
     Dates: start: 20190619
  4. OPSUMIT [Concomitant]
     Active Substance: MACITENTAN
     Indication: PRODUCT USED FOR UNKNOWN INDICATION
     Dosage: UNK
     Route: 065

REACTIONS (10)
  - Nasal congestion [Unknown]
  - Nightmare [Unknown]
  - Asthenia [Unknown]
  - Infusion site injury [Unknown]
  - Sinusitis [Recovered/Resolved]
  - Headache [Unknown]
  - Fatigue [Unknown]
  - Device infusion issue [Unknown]
  - Toothache [Unknown]
  - Musculoskeletal discomfort [Unknown]
